FAERS Safety Report 4368610-8 (Version None)
Quarter: 2004Q2

REPORT INFORMATION
  Report Type: 
  Country: None (occurrence: None)
  Receive Date: 20040528
  Receipt Date: 20040521
  Transmission Date: 20050107
  Serious: Yes (Death, Other)
  Sender: FDA-Public Use
  Company Number: 2003JP006296

PATIENT
  Age: 20 Month
  Sex: Male

DRUGS (3)
  1. PROGRAF [Suspect]
     Indication: BONE MARROW TRANSPLANT
     Dates: start: 20000220, end: 20000424
  2. PROGRAF [Suspect]
     Indication: BONE MARROW TRANSPLANT
     Dates: start: 20000515, end: 20000904
  3. METHYLPREDNISOLONE [Suspect]
     Dates: start: 20000304, end: 20000904

REACTIONS (9)
  - BLOOD PRESSURE SYSTOLIC INCREASED [None]
  - BRAIN SCAN ABNORMAL [None]
  - CYTOMEGALOVIRUS INFECTION [None]
  - ENCEPHALOPATHY [None]
  - GRAFT VERSUS HOST DISEASE [None]
  - GRAND MAL CONVULSION [None]
  - INFECTION [None]
  - LYMPHOMA [None]
  - STATUS EPILEPTICUS [None]
